FAERS Safety Report 22141751 (Version 6)
Quarter: 2023Q4

REPORT INFORMATION
  Report Type: Spontaneous
  Country: US (occurrence: US)
  Receive Date: 20230327
  Receipt Date: 20231208
  Transmission Date: 20240109
  Serious: No
  Sender: FDA-Public Use
  Company Number: US-PFIZER INC-PV202300055693

PATIENT
  Age: 65 Year
  Sex: Female

DRUGS (1)
  1. IBRANCE [Suspect]
     Active Substance: PALBOCICLIB
     Indication: Breast cancer female
     Dosage: 3 WEEKS ON 1 WEEK OFF
     Route: 048

REACTIONS (3)
  - Feeling abnormal [Unknown]
  - Malaise [Unknown]
  - Illness [Unknown]
